FAERS Safety Report 7277514-2 (Version None)
Quarter: 2011Q1

REPORT INFORMATION
  Report Type: 
  Country: None (occurrence: None)
  Receive Date: 20110202
  Receipt Date: 20110202
  Transmission Date: 20110831
  Serious: Yes (Hospitalization)
  Sender: FDA-Public Use
  Company Number: None

PATIENT
  Age: 52 Year
  Sex: Male
  Weight: 72.5755 kg

DRUGS (1)
  1. SINGULAIR [Suspect]
     Indication: MULTIPLE ALLERGIES
     Dosage: 15 PILLS ONCE A DAY PO
     Route: 048
     Dates: start: 20110112, end: 20110117

REACTIONS (4)
  - INFECTION [None]
  - INFLAMMATION [None]
  - RASH [None]
  - MASS [None]
